FAERS Safety Report 13213389 (Version 2)
Quarter: 2017Q3

REPORT INFORMATION
  Report Type: Spontaneous
  Country: GB (occurrence: GB)
  Receive Date: 20170210
  Receipt Date: 20170807
  Transmission Date: 20171127
  Serious: Yes (Hospitalization)
  Sender: FDA-Public Use
  Company Number: GB-TEVA-737467ACC

PATIENT
  Age: 74 Year

DRUGS (9)
  1. MOXONIDINE [Concomitant]
     Active Substance: MOXONIDINE
  2. TRIMETHOPRIM. [Suspect]
     Active Substance: TRIMETHOPRIM
     Indication: URINARY TRACT INFECTION
     Dates: start: 20170106, end: 20170112
  3. CICLOSPORIN [Concomitant]
     Active Substance: CYCLOSPORINE
  4. OMEPRAZOLE. [Concomitant]
     Active Substance: OMEPRAZOLE
  5. SODIUM BICARBONATE. [Concomitant]
     Active Substance: SODIUM BICARBONATE
  6. ASPIRIN. [Concomitant]
     Active Substance: ASPIRIN
  7. QUININE [Concomitant]
     Active Substance: QUININE
  8. ADCAL-D3 [Concomitant]
     Active Substance: CALCIUM CARBONATE\CHOLECALCIFEROL
  9. AZATHIOPRINE. [Concomitant]
     Active Substance: AZATHIOPRINE

REACTIONS (4)
  - Nausea [Unknown]
  - Headache [Unknown]
  - Acute kidney injury [Recovering/Resolving]
  - Pain [Unknown]

NARRATIVE: CASE EVENT DATE: 20170112
